FAERS Safety Report 22319482 (Version 3)
Quarter: 2023Q2

REPORT INFORMATION
  Report Type: Report from Study
  Country: MX (occurrence: MX)
  Receive Date: 20230515
  Receipt Date: 20230623
  Transmission Date: 20230722
  Serious: Yes (Hospitalization)
  Sender: FDA-Public Use
  Company Number: MX-002147023-NVSC2022MX277561

PATIENT
  Age: 60 Year
  Sex: Female
  Weight: 56 kg

DRUGS (2)
  1. OFATUMUMAB [Suspect]
     Active Substance: OFATUMUMAB
     Indication: Multiple sclerosis
     Dosage: 20 MG
     Route: 058
     Dates: start: 20221106
  2. OFATUMUMAB [Suspect]
     Active Substance: OFATUMUMAB
     Dosage: 1 DOSAGE FORM (LISY 20MG GLW  0.4ML) (APPLY AT WEEK 0, 2 AND 4. AFTERWARDS APPLY ONCE A MONTH)
     Route: 058

REACTIONS (12)
  - COVID-19 [Not Recovered/Not Resolved]
  - Pulmonary embolism [Not Recovered/Not Resolved]
  - Dyspnoea [Unknown]
  - Decreased immune responsiveness [Unknown]
  - Arthralgia [Not Recovered/Not Resolved]
  - Temperature intolerance [Unknown]
  - Sensory disturbance [Unknown]
  - Hypoaesthesia [Recovered/Resolved]
  - Insomnia [Recovering/Resolving]
  - Injection site pain [Unknown]
  - Off label use [Not Recovered/Not Resolved]
  - Drug ineffective [Not Recovered/Not Resolved]

NARRATIVE: CASE EVENT DATE: 20221106
